FAERS Safety Report 22174826 (Version 1)
Quarter: 2023Q2

REPORT INFORMATION
  Report Type: Spontaneous
  Country: FR (occurrence: FR)
  Receive Date: 20230405
  Receipt Date: 20230405
  Transmission Date: 20230722
  Serious: Yes (Disabling)
  Sender: FDA-Public Use
  Company Number: FR-AFSSAPS-LY2023000465

PATIENT
  Age: 61 Year
  Sex: Female
  Weight: 84 kg

DRUGS (1)
  1. ANASTROZOLE [Suspect]
     Active Substance: ANASTROZOLE
     Indication: Breast cancer
     Dosage: 1 DOSAGE FORM, ONCE A DAY
     Route: 048
     Dates: start: 202202, end: 20230316

REACTIONS (1)
  - Fasciitis [Not Recovered/Not Resolved]

NARRATIVE: CASE EVENT DATE: 20230301
